FAERS Safety Report 24206285 (Version 1)
Quarter: 2024Q3

REPORT INFORMATION
  Report Type: Spontaneous
  Country: GR (occurrence: None)
  Receive Date: 20240813
  Receipt Date: 20240813
  Transmission Date: 20241017
  Serious: Yes (Other)
  Sender: ASTRAZENECA
  Company Number: 2024A182362

PATIENT
  Age: 14244 Day
  Sex: Female

DRUGS (2)
  1. DAPAGLIFLOZIN [Suspect]
     Active Substance: DAPAGLIFLOZIN
     Route: 048
  2. DALACIN [Concomitant]

REACTIONS (4)
  - Product confusion [Unknown]
  - Abdominal discomfort [Unknown]
  - Wrong product administered [Unknown]
  - Accidental overdose [Unknown]
